FAERS Safety Report 10831800 (Version 2)
Quarter: 2015Q1

REPORT INFORMATION
  Report Type: Spontaneous
  Country: DE (occurrence: DE)
  Receive Date: 20150219
  Receipt Date: 20150326
  Transmission Date: 20150721
  Serious: Yes (Other)
  Sender: FDA-Public Use
  Company Number: DE-UCBSA-2015003985

PATIENT
  Sex: Female
  Weight: 4 kg

DRUGS (2)
  1. ORFIRIL [Concomitant]
     Active Substance: VALPROIC ACID
     Indication: GENERALISED TONIC-CLONIC SEIZURE
     Dosage: DAILY DOSE: 450, 150-0-300, 2X/DAY (BID)
     Route: 064
     Dates: end: 20140210
  2. KEPPRA [Suspect]
     Active Substance: LEVETIRACETAM
     Indication: GENERALISED TONIC-CLONIC SEIZURE
     Dosage: 1250 MG, 2X/DAY (BID)
     Route: 064
     Dates: start: 20140120, end: 2014

REACTIONS (2)
  - Foetal exposure during pregnancy [Unknown]
  - Bradycardia foetal [Unknown]

NARRATIVE: CASE EVENT DATE: 2014
